FAERS Safety Report 6275795-5 (Version None)
Quarter: 2009Q3

REPORT INFORMATION
  Report Type: 
  Country: None (occurrence: None)
  Receive Date: 20090717
  Receipt Date: 20080322
  Transmission Date: 20100115
  Serious: Yes (Hospitalization, Other)
  Sender: FDA-Public Use
  Company Number: 2008AP000722

PATIENT
  Age: 3 Year
  Sex: Female

DRUGS (4)
  1. TOPIRAMATE [Suspect]
     Indication: MYOCLONIC EPILEPSY
     Dosage: 8.4 MG/KG; QD
  2. VALPROIC ACID [Suspect]
     Indication: MYOCLONIC EPILEPSY
     Dosage: 27 MG/KG; QD
  3. ACETAMINOPHEN [Suspect]
     Indication: PYREXIA
  4. CLOBAZAM (CLOBAZAM) [Concomitant]

REACTIONS (6)
  - ALANINE AMINOTRANSFERASE INCREASED [None]
  - AMMONIA INCREASED [None]
  - ASPARTATE AMINOTRANSFERASE INCREASED [None]
  - DRUG INTERACTION [None]
  - HEPATOTOXICITY [None]
  - RESPIRATORY SYNCYTIAL VIRUS BRONCHIOLITIS [None]
